FAERS Safety Report 10495985 (Version 2)
Quarter: 2014Q4

REPORT INFORMATION
  Report Type: Spontaneous
  Country: JP (occurrence: JP)
  Receive Date: 20141003
  Receipt Date: 20141003
  Transmission Date: 20150528
  Serious: Yes (Other)
  Sender: FDA-Public Use
  Company Number: JP-ASTRAZENECA-2014SE71424

PATIENT
  Age: 50 Year
  Sex: Male

DRUGS (5)
  1. ANAPEINE [Suspect]
     Active Substance: ROPIVACAINE HYDROCHLORIDE
     Indication: NERVE BLOCK
     Route: 053
     Dates: start: 2013, end: 2013
  2. FENTANYL. [Concomitant]
     Active Substance: FENTANYL
     Indication: INDUCTION AND MAINTENANCE OF ANAESTHESIA
     Dosage: AT INDUCTION OF ANESTHESIA
     Route: 042
     Dates: start: 2013
  3. FENTANYL. [Concomitant]
     Active Substance: FENTANYL
     Indication: INDUCTION AND MAINTENANCE OF ANAESTHESIA
     Dosage: DURING MAINTENANCE OF ANESTHESIA
     Route: 042
  4. PROPOFOL. [Concomitant]
     Active Substance: PROPOFOL
     Indication: INDUCTION OF ANAESTHESIA
     Route: 042
     Dates: start: 2013, end: 2013
  5. SEVOFLURANE. [Concomitant]
     Active Substance: SEVOFLURANE
     Indication: MAINTENANCE OF ANAESTHESIA
     Route: 055
     Dates: start: 2013

REACTIONS (1)
  - Phrenic nerve paralysis [Recovered/Resolved]

NARRATIVE: CASE EVENT DATE: 2013
